FAERS Safety Report 5679453-7 (Version None)
Quarter: 2008Q1

REPORT INFORMATION
  Report Type: 
  Country: None (occurrence: None)
  Receive Date: 20080325
  Receipt Date: 20080317
  Transmission Date: 20080703
  Serious: Yes (Hospitalization)
  Sender: FDA-Public Use
  Company Number: GB-PFIZER INC-2007073609

PATIENT
  Sex: Female
  Weight: 70.5 kg

DRUGS (3)
  1. CELECOXIB [Suspect]
     Indication: OSTEOARTHRITIS
     Route: 048
  2. CELECOXIB [Suspect]
     Indication: RHEUMATOID ARTHRITIS
  3. LEVOTHYROXINE SODIUM [Concomitant]
     Route: 048

REACTIONS (4)
  - BALANCE DISORDER [None]
  - DYSARTHRIA [None]
  - HEADACHE [None]
  - NAUSEA [None]
